FAERS Safety Report 6126484-9 (Version None)
Quarter: 2009Q1

REPORT INFORMATION
  Report Type: 
  Country: None (occurrence: None)
  Receive Date: 20090320
  Receipt Date: 20090305
  Transmission Date: 20090719
  Serious: Yes (Life-Threatening, Hospitalization)
  Sender: FDA-Public Use
  Company Number: FR-PFIZER INC-2009183054

PATIENT

DRUGS (3)
  1. XANAX [Suspect]
     Route: 048
  2. DEROXAT [Suspect]
     Route: 048
  3. MOCLAMINE [Suspect]
     Route: 048

REACTIONS (1)
  - SEROTONIN SYNDROME [None]
